FAERS Safety Report 8087724-2 (Version None)
Quarter: 2012Q1

REPORT INFORMATION
  Report Type: 
  Country: None (occurrence: None)
  Receive Date: 20120128
  Receipt Date: 20110420
  Transmission Date: 20120608
  Serious: No
  Sender: FDA-Public Use
  Company Number: US-ABBOTT-11P-163-0721162-00

PATIENT
  Sex: Female
  Weight: 63.56 kg

DRUGS (9)
  1. LOPRESSOR [Concomitant]
     Indication: CARDIAC DISORDER
  2. BUPROPION HYDROCHLORIDE [Concomitant]
     Indication: EX-TOBACCO USER
  3. HUMIRA [Suspect]
     Indication: CROHN'S DISEASE
     Dosage: USED SAMPLE PEN
     Dates: start: 20110420
  4. PLAVIX [Concomitant]
     Indication: CORONARY ARTERIAL STENT INSERTION
     Dates: start: 20100101
  5. NIASPAN [Concomitant]
     Indication: BLOOD CHOLESTEROL INCREASED
  6. ASPIRIN [Concomitant]
     Indication: CARDIAC DISORDER
  7. BUPROPION HYDROCHLORIDE [Concomitant]
     Indication: DEPRESSION
  8. ZOCOR [Concomitant]
     Indication: BLOOD CHOLESTEROL INCREASED
  9. EXFORGE [Concomitant]
     Indication: HYPERTENSION

REACTIONS (1)
  - INJECTION SITE PAIN [None]
